FAERS Safety Report 4909981-0 (Version None)
Quarter: 2006Q1

REPORT INFORMATION
  Report Type: 
  Country: None (occurrence: None)
  Receive Date: 20060208
  Receipt Date: 20060125
  Transmission Date: 20060701
  Serious: Yes (Hospitalization)
  Sender: FDA-Public Use
  Company Number: 2004106485

PATIENT
  Age: 66 Year
  Sex: Female
  Weight: 67 kg

DRUGS (8)
  1. ALDACTONE [Suspect]
     Indication: ILL-DEFINED DISORDER
     Dosage: ORAL
     Route: 048
     Dates: end: 20040513
  2. ALMARL (AROTINOLOL HYDROCHLORIDE) [Suspect]
     Indication: HYPERTENSION
     Dosage: 20 MG (10 MG, TWICE DAILY); ORAL
     Route: 048
  3. BLOPRESS (CANDESARTAN CILEXETIL) [Suspect]
     Indication: HYPERTENSION
     Dosage: 8 MG (8 MG, DAILY); ORAL
     Route: 048
  4. NICARDIPINE HCL [Concomitant]
  5. DIURETICS [Concomitant]
  6. URSO 250 [Concomitant]
  7. POTASSIUM [Concomitant]
  8. ADALAT [Concomitant]

REACTIONS (11)
  - ATRIOVENTRICULAR BLOCK COMPLETE [None]
  - CARDIOGENIC SHOCK [None]
  - DEPRESSED LEVEL OF CONSCIOUSNESS [None]
  - DRUG INTERACTION [None]
  - HAEMODIALYSIS [None]
  - HEART RATE DECREASED [None]
  - HYPERKALAEMIA [None]
  - LYMPHOCYTE PERCENTAGE DECREASED [None]
  - NEUTROPHIL PERCENTAGE INCREASED [None]
  - RESPIRATORY TRACT INFECTION [None]
  - SINUS ARREST [None]
